FAERS Safety Report 8919084 (Version 1)
Quarter: 2012Q4

REPORT INFORMATION
  Report Type: 
  Country: CH (occurrence: CH)
  Receive Date: 20121121
  Receipt Date: 20121121
  Transmission Date: 20130627
  Serious: Yes (Hospitalization)
  Sender: FDA-Public Use
  Company Number: CH-JNJFOC-20121108630

PATIENT

DRUGS (3)
  1. ABCIXIMAB [Suspect]
     Indication: PERIPHERAL REVASCULARISATION
     Dosage: bolus dose
     Route: 013
  2. ABCIXIMAB [Suspect]
     Indication: PERIPHERAL REVASCULARISATION
     Dosage: 0.125 to maximum of 10 mcg/kg/min for 12 hours as maintenance dose
     Route: 013
  3. HEPARIN [Suspect]
     Indication: PERIPHERAL ARTERY ANGIOPLASTY
     Route: 042

REACTIONS (3)
  - Vascular pseudoaneurysm [Recovered/Resolved]
  - Incorrect route of drug administration [Unknown]
  - Off label use [Unknown]
